FAERS Safety Report 22965408 (Version 2)
Quarter: 2024Q2

REPORT INFORMATION
  Report Type: Report from Study
  Country: US (occurrence: US)
  Receive Date: 20230921
  Receipt Date: 20240430
  Transmission Date: 20240716
  Serious: Yes (Other)
  Sender: FDA-Public Use
  Company Number: US-TAKEDA-2023TUS044232

PATIENT
  Sex: Male

DRUGS (1)
  1. IDURSULFASE [Suspect]
     Active Substance: IDURSULFASE
     Indication: Mucopolysaccharidosis II
     Dosage: 8 DOSAGE FORM, 1/WEEK
     Route: 042
     Dates: start: 20061009

REACTIONS (2)
  - Dementia [Not Recovered/Not Resolved]
  - Disease progression [Not Recovered/Not Resolved]
